FAERS Safety Report 7519128-2 (Version None)
Quarter: 2011Q2

REPORT INFORMATION
  Report Type: 
  Country: None (occurrence: None)
  Receive Date: 20110602
  Receipt Date: 20110519
  Transmission Date: 20111010
  Serious: Yes (Other)
  Sender: FDA-Public Use
  Company Number: PHHY2011ZA44048

PATIENT
  Sex: Female

DRUGS (1)
  1. ZOLEDRONIC ACID [Suspect]
     Dosage: 5 MG,
     Route: 042
     Dates: start: 20110520

REACTIONS (7)
  - CHEST DISCOMFORT [None]
  - MYOCARDIAL INFARCTION [None]
  - MALAISE [None]
  - PALPITATIONS [None]
  - FEELING ABNORMAL [None]
  - CHEST PAIN [None]
  - PAIN [None]
